FAERS Safety Report 16379748 (Version 1)
Quarter: 2019Q2

REPORT INFORMATION
  Report Type: Spontaneous
  Country: US (occurrence: US)
  Receive Date: 20190531
  Receipt Date: 20190531
  Transmission Date: 20190711
  Serious: No
  Sender: FDA-Public Use
  Company Number: US-TEVA-2019-US-1047049

PATIENT
  Sex: Male

DRUGS (3)
  1. CLONAZEPAM ACTAVIS [Suspect]
     Active Substance: CLONAZEPAM
     Indication: ANXIETY DISORDER
     Route: 065
  2. CLONAZEPAM ACTAVIS [Suspect]
     Active Substance: CLONAZEPAM
     Indication: PANIC DISORDER
  3. CLONAZEPAM ACTAVIS [Suspect]
     Active Substance: CLONAZEPAM
     Indication: SLEEP DISORDER

REACTIONS (5)
  - Abdominal pain upper [Unknown]
  - Drug ineffective [Unknown]
  - Panic attack [Unknown]
  - Product use in unapproved indication [Unknown]
  - Product substitution issue [Unknown]
